FAERS Safety Report 4743488-9 (Version None)
Quarter: 2005Q3

REPORT INFORMATION
  Report Type: 
  Country: None (occurrence: None)
  Receive Date: 20050809
  Receipt Date: 20050801
  Transmission Date: 20060218
  Serious: Yes (Other)
  Sender: FDA-Public Use
  Company Number: FR-2005-007845

PATIENT
  Age: 19 Year
  Sex: Female
  Weight: 65 kg

DRUGS (1)
  1. DROSPIRENONE + ETHINYL ESTRADIOL [Suspect]
     Indication: OEDEMA
     Dosage: 1 TAB (S), 21D/28D, ORAL
     Route: 048
     Dates: start: 20040801, end: 20041201

REACTIONS (2)
  - DRUG INTOLERANCE [None]
  - RAYNAUD'S PHENOMENON [None]
